FAERS Safety Report 18011460 (Version 1)
Quarter: 2020Q3

REPORT INFORMATION
  Report Type: Report from Study
  Country: None (occurrence: US)
  Receive Date: 20200712
  Receipt Date: 20200712
  Transmission Date: 20201103
  Serious: Yes (Other)
  Sender: FDA-Public Use
  Company Number: US-ABBVIE-20K-163-3476601-00

PATIENT
  Sex: Male

DRUGS (1)
  1. HUMIRA [Suspect]
     Active Substance: ADALIMUMAB
     Indication: ANKYLOSING SPONDYLITIS
     Route: 058

REACTIONS (8)
  - Tooth injury [Not Recovered/Not Resolved]
  - Immune system disorder [Unknown]
  - Inappropriate schedule of product administration [Unknown]
  - Pain [Unknown]
  - Physical assault [Not Recovered/Not Resolved]
  - Gait disturbance [Recovering/Resolving]
  - Mouth injury [Not Recovered/Not Resolved]
  - Arthralgia [Unknown]

NARRATIVE: CASE EVENT DATE: 2013
